FAERS Safety Report 10237190 (Version 1)
Quarter: 2014Q2

REPORT INFORMATION
  Report Type: Spontaneous
  Country: US (occurrence: US)
  Receive Date: 20140613
  Receipt Date: 20140613
  Transmission Date: 20141212
  Serious: No
  Sender: FDA-Public Use
  Company Number: US-GILEAD-2014-0104976

PATIENT
  Sex: Female

DRUGS (2)
  1. SOVALDI [Suspect]
     Indication: HEPATITIS C
     Dosage: UNK
     Route: 065
     Dates: start: 201405, end: 201405
  2. RIBAVIRIN [Suspect]
     Indication: HEPATITIS C
     Dosage: UNK
     Route: 065
     Dates: start: 201405, end: 201405

REACTIONS (7)
  - Malaise [Unknown]
  - Tremor [Unknown]
  - Parosmia [Unknown]
  - Anxiety [Unknown]
  - Chest discomfort [Unknown]
  - Panic attack [Unknown]
  - Myalgia [Unknown]
